FAERS Safety Report 8777639 (Version 2)
Quarter: 2012Q4

REPORT INFORMATION
  Report Type: 
  Country: US (occurrence: US)
  Receive Date: 20120912
  Receipt Date: 20120925
  Transmission Date: 20130627
  Serious: No
  Sender: FDA-Public Use
  Company Number: US-ASTRAZENECA-2012SE65389

PATIENT
  Age: 76 Year
  Sex: Female
  Weight: 78.9 kg

DRUGS (6)
  1. SYMBICORT [Suspect]
     Indication: ASTHMA
     Dosage: 320MCG TWO TIMES A DAY
     Route: 055
     Dates: start: 201106
  2. SYMBICORT [Suspect]
     Indication: BRONCHIAL HYPERREACTIVITY
     Dosage: 320MCG TWO TIMES A DAY
     Route: 055
     Dates: start: 201106
  3. SYMBICORT [Suspect]
     Indication: ASTHMA
     Dosage: 160/4.5 MCG TWO PUFFS TWO TIMES A DAY
     Route: 055
     Dates: start: 20120827
  4. SYMBICORT [Suspect]
     Indication: BRONCHIAL HYPERREACTIVITY
     Dosage: 160/4.5 MCG TWO PUFFS TWO TIMES A DAY
     Route: 055
     Dates: start: 20120827
  5. LISINOPRIL [Concomitant]
     Indication: HYPERTENSION
     Route: 048
  6. DETROL [Concomitant]
     Indication: BLADDER SPASM
     Route: 048

REACTIONS (1)
  - Lung disorder [Unknown]
